FAERS Safety Report 5115218-2 (Version None)
Quarter: 2006Q3

REPORT INFORMATION
  Report Type: 
  Country: None (occurrence: None)
  Receive Date: 20060926
  Receipt Date: 20060419
  Transmission Date: 20061208
  Serious: Yes (Death)
  Sender: FDA-Public Use
  Company Number: US-AVENTIS-200613702US

PATIENT
  Age: 69 Year
  Sex: Male

DRUGS (7)
  1. LANTUS [Suspect]
     Indication: DIABETES MELLITUS NON-INSULIN-DEPENDENT
     Dates: start: 20060412
  2. OPTICLIK (INSULIN INJECTION PEN) [Suspect]
     Indication: DIABETES MELLITUS NON-INSULIN-DEPENDENT
     Dates: start: 20060412
  3. AMARYL [Concomitant]
     Dosage: DOSE: UNK
  4. ACTOS [Concomitant]
     Dosage: DOSE: UNK
  5. TOPAMAX [Concomitant]
     Dosage: DOSE: UNK
  6. BACLOFEN [Concomitant]
     Dosage: DOSE: UNK
  7. ZANAFLEX [Concomitant]
     Dosage: DOSE: UNK

REACTIONS (3)
  - DEATH [None]
  - INJECTION SITE HAEMORRHAGE [None]
  - PHARMACEUTICAL PRODUCT COMPLAINT [None]
